FAERS Safety Report 9890321 (Version 1)
Quarter: 2014Q1

REPORT INFORMATION
  Report Type: Spontaneous
  Country: DE (occurrence: DE)
  Receive Date: 20140212
  Receipt Date: 20140212
  Transmission Date: 20141002
  Serious: Yes (Life-Threatening, Hospitalization)
  Sender: FDA-Public Use
  Company Number: DE-AMGEN-DEUSP2014008804

PATIENT
  Age: 56 Year
  Sex: Male
  Weight: 70 kg

DRUGS (5)
  1. NEULASTA [Suspect]
     Indication: CHEMOTHERAPY
     Dosage: 6 MG, ^ONCE^
     Route: 058
  2. DEXAMETHASONE [Concomitant]
     Indication: MANTLE CELL LYMPHOMA
     Dosage: UNK
     Route: 042
  3. RITUXIMAB [Concomitant]
     Dosage: UNK
     Route: 042
  4. CISPLATIN [Concomitant]
     Dosage: UNK
     Route: 042
  5. ARA-C [Concomitant]
     Dosage: UNK
     Route: 042

REACTIONS (1)
  - Rhabdomyolysis [Not Recovered/Not Resolved]
